FAERS Safety Report 17105946 (Version 1)
Quarter: 2019Q4

REPORT INFORMATION
  Report Type: Spontaneous
  Country: SE (occurrence: SE)
  Receive Date: 20191203
  Receipt Date: 20191203
  Transmission Date: 20200122
  Serious: Yes (Hospitalization)
  Sender: FDA-Public Use
  Company Number: SE-PFIZER INC-2019521634

PATIENT
  Age: 22 Year
  Sex: Male

DRUGS (2)
  1. VENLAFAXINE HCL [Suspect]
     Active Substance: VENLAFAXINE HYDROCHLORIDE
     Dosage: ^3-4 VENLAFAXINE 600MG^
     Route: 048
     Dates: start: 20180823, end: 20180823
  2. LERGIGAN [PROMETHAZINE HYDROCHLORIDE] [Suspect]
     Active Substance: PROMETHAZINE HYDROCHLORIDE
     Dosage: 250 MG, UNK
     Route: 048
     Dates: start: 20180823, end: 20180823

REACTIONS (7)
  - Intentional overdose [Unknown]
  - Sluggishness [Unknown]
  - Intentional self-injury [Unknown]
  - Dyskinesia [Unknown]
  - Fatigue [Unknown]
  - Abnormal behaviour [Unknown]
  - Disturbance in attention [Unknown]

NARRATIVE: CASE EVENT DATE: 20180823
